FAERS Safety Report 7430192-1 (Version None)
Quarter: 2011Q2

REPORT INFORMATION
  Report Type: 
  Country: None (occurrence: None)
  Receive Date: 20110421
  Receipt Date: 20100729
  Transmission Date: 20111010
  Serious: No
  Sender: FDA-Public Use
  Company Number: US-ASTRAZENECA-2010SE35510

PATIENT
  Sex: Female

DRUGS (2)
  1. TOPROL-XL [Suspect]
     Route: 048
     Dates: start: 20100722
  2. TOPROL-XL [Suspect]
     Route: 048
     Dates: start: 20100715, end: 20100721

REACTIONS (4)
  - PALPITATIONS [None]
  - BEDRIDDEN [None]
  - FATIGUE [None]
  - IMPAIRED WORK ABILITY [None]
